FAERS Safety Report 9263771 (Version 1)
Quarter: 2013Q2

REPORT INFORMATION
  Report Type: Spontaneous
  Country: BR (occurrence: BR)
  Receive Date: 20130430
  Receipt Date: 20130430
  Transmission Date: 20140414
  Serious: Yes (Hospitalization)
  Sender: FDA-Public Use
  Company Number: BR-ASTRAZENECA-2013SE29118

PATIENT
  Age: 28101 Day
  Sex: Female

DRUGS (2)
  1. ATACAND HCT [Suspect]
     Indication: HYPERTENSION
     Dosage: 16 + 12.5 MG
     Route: 048
     Dates: start: 2011
  2. CRESTOR [Suspect]
     Route: 048

REACTIONS (2)
  - Gastrointestinal infection [Recovered/Resolved]
  - Syncope [Recovered/Resolved]
